FAERS Safety Report 6981803-6 (Version None)
Quarter: 2010Q3

REPORT INFORMATION
  Report Type: 
  Country: None (occurrence: None)
  Receive Date: 20100914
  Receipt Date: 20090924
  Transmission Date: 20110219
  Serious: Yes (Other)
  Sender: FDA-Public Use
  Company Number: US-PFIZER INC-2009275653

PATIENT
  Sex: Female
  Weight: 133.79 kg

DRUGS (5)
  1. LYRICA [Suspect]
     Indication: NEURALGIA
     Dosage: 200 MG, 3X/DAY
     Dates: start: 20090701, end: 20090901
  2. CYMBALTA [Concomitant]
  3. TRAZODONE [Concomitant]
  4. BENICAR [Concomitant]
     Indication: HYPERTENSION
     Dosage: UNK
  5. CELEBREX [Concomitant]
     Dosage: UNK

REACTIONS (1)
  - HALLUCINATION, OLFACTORY [None]
